FAERS Safety Report 5349027-6 (Version None)
Quarter: 2007Q2

REPORT INFORMATION
  Report Type: 
  Country: None (occurrence: None)
  Receive Date: 20070607
  Receipt Date: 20070526
  Transmission Date: 20071010
  Serious: Yes (Hospitalization)
  Sender: FDA-Public Use
  Company Number: US-NOVOPROD-264030

PATIENT
  Sex: Female

DRUGS (5)
  1. LEVEMIR [Suspect]
     Indication: DIABETES MELLITUS INSULIN-DEPENDENT
     Dosage: 1 ML, QD
     Route: 058
     Dates: start: 20070308, end: 20070320
  2. LEVEMIR [Suspect]
     Dosage: 5 ML, QD
     Route: 058
     Dates: start: 20070321, end: 20070322
  3. LEVEMIR [Suspect]
     Dosage: 40 ML, QD
     Route: 058
     Dates: start: 20070323
  4. LEVEMIR [Suspect]
     Dosage: 70 ML, QD
     Route: 058
  5. NOVOLOG [Concomitant]
     Indication: DIABETES MELLITUS INSULIN-DEPENDENT
     Dates: start: 20070401

REACTIONS (5)
  - HEADACHE [None]
  - HYPOAESTHESIA [None]
  - INCORRECT DOSE ADMINISTERED [None]
  - MALAISE [None]
  - TREMOR [None]
